FAERS Safety Report 5110279-9 (Version None)
Quarter: 2006Q3

REPORT INFORMATION
  Report Type: 
  Country: None (occurrence: None)
  Receive Date: 20060921
  Receipt Date: 20060913
  Transmission Date: 20061208
  Serious: Yes (Other)
  Sender: FDA-Public Use
  Company Number: SE-GLAXOSMITHKLINE-B0438921A

PATIENT
  Age: 49 Year
  Sex: Female

DRUGS (1)
  1. SEROXAT [Suspect]
     Indication: DEPRESSION
     Dosage: 20MG PER DAY
     Route: 048
     Dates: start: 20051109, end: 20060415

REACTIONS (4)
  - ECCHYMOSIS [None]
  - HAEMATOMA [None]
  - THROMBOCYTHAEMIA [None]
  - TRANSAMINASES INCREASED [None]
